FAERS Safety Report 7129234-2 (Version None)
Quarter: 2010Q4

REPORT INFORMATION
  Report Type: 
  Country: None (occurrence: None)
  Receive Date: 20101130
  Receipt Date: 20101129
  Transmission Date: 20110411
  Serious: Yes (Life-Threatening, Hospitalization)
  Sender: FDA-Public Use
  Company Number: JP-PFIZER INC-2010110593

PATIENT
  Age: 48 Year
  Sex: Female
  Weight: 42.3 kg

DRUGS (13)
  1. SUNITINIB MALATE [Suspect]
     Indication: PHAEOCHROMOCYTOMA MALIGNANT
     Dosage: 25 MG, 1X/DAY
     Route: 048
     Dates: start: 20090918, end: 20100719
  2. DOXAZOSIN MESYLATE [Concomitant]
     Route: 048
     Dates: start: 20090919
  3. HIRUDOID [Concomitant]
     Route: 062
  4. NOVAMIN [Concomitant]
     Route: 048
  5. MS CONTIN [Concomitant]
     Route: 048
  6. MAGNESIUM OXIDE [Concomitant]
     Route: 048
  7. PRIMPERAN [Concomitant]
     Route: 048
  8. RHYTHMY [Concomitant]
     Route: 048
  9. PAXIL [Concomitant]
     Route: 048
  10. MIRTAZAPINE [Concomitant]
     Dosage: 15 MG, 1X/DAY
     Route: 048
  11. EVAMYL [Concomitant]
     Dosage: 2 MG, 1X/DAY
     Route: 048
     Dates: start: 20100409
  12. AMOBAN [Concomitant]
     Dosage: 7.5 MG, 1X/DAY
     Route: 048
     Dates: start: 20100409
  13. LAFUTIDINE [Concomitant]
     Dosage: 10 MG, 1X/DAY
     Route: 048
     Dates: start: 20100609

REACTIONS (3)
  - DECREASED APPETITE [None]
  - MALAISE [None]
  - NAUSEA [None]
